FAERS Safety Report 8735532 (Version 2)
Quarter: 2012Q4

REPORT INFORMATION
  Report Type: 
  Country: GB (occurrence: GB)
  Receive Date: 20120822
  Receipt Date: 20121107
  Transmission Date: 20130627
  Serious: Yes (Death, Other)
  Sender: FDA-Public Use
  Company Number: PHFR2012GB004573

PATIENT
  Age: 47 Year
  Sex: Male

DRUGS (6)
  1. CLOZARIL [Suspect]
     Indication: SCHIZOPHRENIA
     Dates: start: 20110309
  2. CLOZARIL [Suspect]
     Dosage: 650 mg, (250 mg and 400 mg unspecified)
     Route: 048
     Dates: start: 20110727
  3. GTN [Concomitant]
  4. RISPERIDONE [Concomitant]
     Indication: BIPOLAR DISORDER
     Dosage: 2 mg, BID
     Route: 048
  5. AMISULPRIDE [Concomitant]
     Indication: BIPOLAR DISORDER
     Dosage: 150 mg, BID
     Route: 048
  6. LITHIUM CARBONATE [Concomitant]
     Dosage: 600 mg, BID
     Route: 048

REACTIONS (11)
  - Cardiac arrest [Fatal]
  - Circulatory collapse [Fatal]
  - Chest pain [Fatal]
  - Angina pectoris [Not Recovered/Not Resolved]
  - Pain [Unknown]
  - Neck deformity [Not Recovered/Not Resolved]
  - Constipation [Not Recovered/Not Resolved]
  - Anaemia [Not Recovered/Not Resolved]
  - White blood cell count increased [Recovering/Resolving]
  - Neutrophil count increased [Recovering/Resolving]
  - Alanine aminotransferase increased [Unknown]
